FAERS Safety Report 7002306-9 (Version None)
Quarter: 2010Q3

REPORT INFORMATION
  Report Type: 
  Country: None (occurrence: None)
  Receive Date: 20100920
  Receipt Date: 20100722
  Transmission Date: 20110219
  Serious: No
  Sender: FDA-Public Use
  Company Number: US-ASTRAZENECA-2010SE34201

PATIENT
  Age: 40 Year
  Sex: Female
  Weight: 54.9 kg

DRUGS (6)
  1. SEROQUEL [Suspect]
     Indication: BIPOLAR DISORDER
     Route: 048
     Dates: start: 20090101
  2. OXYCODONE HCL [Concomitant]
     Indication: PAIN
  3. KLONOPIN [Concomitant]
  4. IRON [Concomitant]
  5. STRESS VITAMINS [Concomitant]
  6. SOMA [Concomitant]

REACTIONS (3)
  - AGITATION [None]
  - DIABETES MELLITUS [None]
  - DRUG DOSE OMISSION [None]
